FAERS Safety Report 8411113 (Version 2)
Quarter: 2013Q2

REPORT INFORMATION
  Report Type: Spontaneous
  Country: US (occurrence: None)
  Receive Date: 20111227
  Receipt Date: 20120426
  Transmission Date: 20140414
  Serious: Yes (Other)
  Sender: FDA-Public Use
  Company Number: PHEH2011US03072

PATIENT
  Sex: Female

DRUGS (6)
  1. GILENYA [Suspect]
     Indication: MULTIPLE SCLEROSIS
     Dosage: 0.5 MG, DAILY, ORAL
     Route: 048
     Dates: start: 20110705
  2. VITAMIN B12 [Concomitant]
  3. AMRIX [Concomitant]
  4. LORCET [Concomitant]
  5. CLONIDINE TRANSDERMAL SYSTEM [Concomitant]
  6. COPAXONE [Concomitant]

REACTIONS (1)
  - CARPAL TUNNEL SYNDROME [None]
